FAERS Safety Report 12153943 (Version 1)
Quarter: 2016Q1

REPORT INFORMATION
  Report Type: Spontaneous
  Country: US (occurrence: US)
  Receive Date: 20160307
  Receipt Date: 20160307
  Transmission Date: 20160526
  Serious: Yes (Other)
  Sender: FDA-Public Use
  Company Number: US-BEH-2016059327

PATIENT
  Sex: Female
  Weight: 73 kg

DRUGS (46)
  1. PROMETHAZINE [Concomitant]
     Active Substance: PROMETHAZINE\PROMETHAZINE HYDROCHLORIDE
  2. BETAMETHASONE. [Concomitant]
     Active Substance: BETAMETHASONE
  3. EPIPEN [Concomitant]
     Active Substance: EPINEPHRINE
  4. CYMBALTA [Concomitant]
     Active Substance: DULOXETINE HYDROCHLORIDE
  5. SINGULAIR [Concomitant]
     Active Substance: MONTELUKAST SODIUM
  6. MILK THISTLE [Concomitant]
     Active Substance: MILK THISTLE
  7. LIDODERM [Concomitant]
     Active Substance: LIDOCAINE
  8. ZEMAIRA [Suspect]
     Active Substance: .ALPHA.1-PROTEINASE INHIBITOR HUMAN
     Indication: PRODUCT USED FOR UNKNOWN INDICATION
     Dosage: 950 MG/VL
     Route: 042
     Dates: start: 20120501
  9. ALBUTEROL. [Concomitant]
     Active Substance: ALBUTEROL
  10. NORMAL SALINE [Concomitant]
     Active Substance: SODIUM CHLORIDE
  11. SILVER [Concomitant]
     Active Substance: SILVER
  12. PRILOSEC [Concomitant]
     Active Substance: OMEPRAZOLE MAGNESIUM
  13. SYMBICORT [Concomitant]
     Active Substance: BUDESONIDE\FORMOTEROL FUMARATE DIHYDRATE
  14. BILOBA [Concomitant]
  15. ZITHROMAX [Concomitant]
     Active Substance: AZITHROMYCIN DIHYDRATE
  16. OXYGEN. [Concomitant]
     Active Substance: OXYGEN
  17. PROAIR HFA [Concomitant]
     Active Substance: ALBUTEROL SULFATE
  18. DIPHENHYDRAMINE. [Concomitant]
     Active Substance: DIPHENHYDRAMINE
  19. SULFADIAZINE. [Concomitant]
     Active Substance: SULFADIAZINE
  20. MS CONTIN [Concomitant]
     Active Substance: MORPHINE SULFATE
  21. OMEGA [Concomitant]
     Active Substance: CONVALLARIA MAJALIS\CRATAEGUS LAEVIGATA LEAF\PROXYPHYLLINE
  22. AZO [Concomitant]
     Active Substance: PHENAZOPYRIDINE HYDROCHLORIDE
  23. METHOCARBAMOL. [Concomitant]
     Active Substance: METHOCARBAMOL
  24. LACTOSE [Concomitant]
     Active Substance: LACTOSE
  25. LORAZEPAM. [Concomitant]
     Active Substance: LORAZEPAM
  26. BACLOFEN. [Concomitant]
     Active Substance: BACLOFEN
  27. MUCINEX [Concomitant]
     Active Substance: GUAIFENESIN
  28. ESTROVEN [Concomitant]
     Active Substance: DIETARY SUPPLEMENT
  29. AUGMENTIN [Concomitant]
     Active Substance: AMOXICILLIN\CLAVULANATE POTASSIUM
  30. ALDACTONE [Concomitant]
     Active Substance: SPIRONOLACTONE
  31. FOLIC ACID. [Concomitant]
     Active Substance: FOLIC ACID
  32. OXYCODONE [Concomitant]
     Active Substance: OXYCODONE
  33. SODIUM CHLORIDE. [Concomitant]
     Active Substance: SODIUM CHLORIDE
  34. XANAX [Concomitant]
     Active Substance: ALPRAZOLAM
  35. NEURONTIN [Concomitant]
     Active Substance: GABAPENTIN
  36. GABAPENTIN. [Concomitant]
     Active Substance: GABAPENTIN
  37. FLAGYL [Concomitant]
     Active Substance: METRONIDAZOLE\METRONIDAZOLE HYDROCHLORIDE
  38. NAPROXEN. [Concomitant]
     Active Substance: NAPROXEN
  39. TRAMADOL. [Concomitant]
     Active Substance: TRAMADOL
  40. HYDROCORTISONE. [Concomitant]
     Active Substance: HYDROCORTISONE
  41. OPANA [Concomitant]
     Active Substance: OXYMORPHONE HYDROCHLORIDE
  42. LMX [Concomitant]
     Active Substance: LIDOCAINE
  43. LEVAQUIN [Concomitant]
     Active Substance: LEVOFLOXACIN
  44. MORPHINE [Concomitant]
     Active Substance: MORPHINE
  45. TRAZODONE [Concomitant]
     Active Substance: TRAZODONE HYDROCHLORIDE
  46. ALPHA LIPOIC ACID [Concomitant]
     Active Substance: .ALPHA.-LIPOIC ACID

REACTIONS (1)
  - Respiratory tract infection [Unknown]
